FAERS Safety Report 6648077-7 (Version None)
Quarter: 2010Q1

REPORT INFORMATION
  Report Type: 
  Country: None (occurrence: None)
  Receive Date: 20100324
  Receipt Date: 20100317
  Transmission Date: 20100710
  Serious: Yes (Other)
  Sender: FDA-Public Use
  Company Number: PHHY2009BR56094

PATIENT
  Age: 35 Year
  Sex: Female
  Weight: 56 kg

DRUGS (8)
  1. TEGRETOL [Suspect]
     Indication: CONVULSION
     Dosage: 1 DF, BID
     Route: 048
     Dates: start: 20030101
  2. TEGRETOL [Suspect]
     Dosage: 1 DF, TID
     Route: 048
  3. ANAFRANIL [Suspect]
     Indication: PANIC DISORDER
     Dosage: 1 DF, BID
     Route: 048
     Dates: start: 20040101
  4. ANAFRANIL [Suspect]
     Dosage: 1 DF/ DAILY
  5. ANAFRANIL [Suspect]
     Dosage: 0.5 DF/ DAILY
     Dates: start: 20091001
  6. ANAFRANIL [Suspect]
     Dosage: 1 DF / DAILY
     Dates: start: 20091101
  7. ANAFRANIL [Suspect]
     Dosage: 0.5 DF / DAILY
  8. RIVOTRIL [Concomitant]
     Indication: ANXIETY
     Dosage: 1 DF/ DAILY
     Dates: start: 20090601

REACTIONS (3)
  - DIZZINESS [None]
  - LABYRINTHITIS [None]
  - ROAD TRAFFIC ACCIDENT [None]
